FAERS Safety Report 5167693-5 (Version None)
Quarter: 2006Q4

REPORT INFORMATION
  Report Type: 
  Country: None (occurrence: None)
  Receive Date: 20061208
  Receipt Date: 20061130
  Transmission Date: 20070319
  Serious: Yes (Other)
  Sender: FDA-Public Use
  Company Number: US-SOLVAY-00206003928

PATIENT
  Age: 678 Month
  Sex: Male
  Weight: 105.5 kg

DRUGS (8)
  1. OMACOR [Concomitant]
     Indication: HYPERCHOLESTEROLAEMIA
     Dosage: DAILY DOSE: 4 GRAM(S)
     Route: 048
  2. ANDROGEL [Suspect]
     Indication: BLOOD TESTOSTERONE DECREASED
     Dosage: DAILY DOSE: 7.5 GRAM(S)
     Route: 062
     Dates: start: 20051101
  3. ANDROGEL [Suspect]
     Dosage: DAILY DOSE:  2.5 GRAM(S)
     Route: 062
     Dates: start: 20050101
  4. ASPIRIN [Concomitant]
     Indication: ILL-DEFINED DISORDER
     Dosage: DAILY DOSE: 81 MILLIGRAM(S)
     Route: 048
  5. METHADONE HCL [Concomitant]
     Indication: ILL-DEFINED DISORDER
     Dosage: DAILY DOSE: 40 MILLIGRAM(S)
     Route: 048
  6. NALTREXONE [Concomitant]
     Indication: ILL-DEFINED DISORDER
     Dosage: DAILY DOSE: 30 MICROGRAM(S)
     Route: 048
  7. TEMAZEPAM [Concomitant]
     Indication: ILL-DEFINED DISORDER
     Dosage: DAILY DOSE: 30 MILLIGRAMS THREE TIMES A WEEK
     Route: 048
  8. PROVIGIL [Concomitant]
     Indication: ILL-DEFINED DISORDER
     Dosage: DAILY DOSE:  UNKNOWN
     Route: 048

REACTIONS (3)
  - ASTHENIA [None]
  - DEPRESSION SUICIDAL [None]
  - IRRITABILITY [None]
